FAERS Safety Report 18599186 (Version 1)
Quarter: 2020Q4

REPORT INFORMATION
  Report Type: Other
  Country: IN (occurrence: IN)
  Receive Date: 20201210
  Receipt Date: 20201210
  Transmission Date: 20210114
  Serious: Yes (Hospitalization)
  Sender: FDA-Public Use
  Company Number: IN-ORCHID HEALTHCARE-2101811

PATIENT
  Age: 80 Year
  Sex: Male

DRUGS (4)
  1. IPRATROPIUMBROMIDE/SALBUTAMOL [Concomitant]
     Route: 065
  2. DIVALPROEX SODIUM. [Suspect]
     Active Substance: DIVALPROEX SODIUM
     Indication: DEMENTIA
     Route: 065
  3. ENALAPRIL [Concomitant]
     Active Substance: ENALAPRIL
     Route: 065
  4. QUETIAPINE. [Concomitant]
     Active Substance: QUETIAPINE
     Route: 065

REACTIONS (2)
  - Encephalopathy [Recovering/Resolving]
  - Normal pressure hydrocephalus [Recovering/Resolving]
